FAERS Safety Report 5806600-6 (Version None)
Quarter: 2008Q3

REPORT INFORMATION
  Report Type: 
  Country: None (occurrence: None)
  Receive Date: 20080710
  Receipt Date: 20080701
  Transmission Date: 20090109
  Serious: Yes (Disabling)
  Sender: FDA-Public Use
  Company Number: PHHY2008SK12872

PATIENT

DRUGS (4)
  1. ZOMETA [Suspect]
     Dosage: 4 MG PER 3-4 WEEKS
     Route: 042
     Dates: start: 20050406, end: 20071217
  2. DEXAMETHASONE [Concomitant]
  3. DECAPEPTYL [Concomitant]
     Dosage: 3.75 MG, QMO
  4. ANDROCUR [Concomitant]
     Dosage: 50 MG, UNK

REACTIONS (2)
  - OSTEONECROSIS [None]
  - PAIN IN JAW [None]
